FAERS Safety Report 12712457 (Version 2)
Quarter: 2016Q3

REPORT INFORMATION
  Report Type: Report from Study
  Country: MX (occurrence: MX)
  Receive Date: 20160902
  Receipt Date: 20160913
  Transmission Date: 20161109
  Serious: Yes (Hospitalization)
  Sender: FDA-Public Use
  Company Number: MX-UNITED THERAPEUTICS-UNT-2016-013661

PATIENT
  Sex: Female

DRUGS (2)
  1. UT-15C SR [Suspect]
     Active Substance: TREPROSTINIL DIOLAMINE
     Indication: PULMONARY ARTERIAL HYPERTENSION
     Dosage: 4.125 MG, BID
     Route: 048
  2. SILDENAFIL. [Concomitant]
     Active Substance: SILDENAFIL
     Indication: PULMONARY ARTERIAL HYPERTENSION
     Dosage: 75 MG TOTAL DAILY DOSE

REACTIONS (3)
  - Tachycardia [Unknown]
  - Hypotension [Unknown]
  - Hypoxia [Unknown]
